FAERS Safety Report 7726024-4 (Version None)
Quarter: 2011Q3

REPORT INFORMATION
  Report Type: 
  Country: None (occurrence: None)
  Receive Date: 20110902
  Receipt Date: 20110823
  Transmission Date: 20111222
  Serious: Yes (Other)
  Sender: FDA-Public Use
  Company Number: US-ROCHE-792901

PATIENT
  Sex: Female

DRUGS (3)
  1. HERCEPTIN [Suspect]
     Route: 042
  2. LAPATINIB [Concomitant]
  3. XELODA [Suspect]
     Route: 048

REACTIONS (2)
  - PANCREATIC MASS [None]
  - BLOOD BILIRUBIN INCREASED [None]
